FAERS Safety Report 6160222-9 (Version None)
Quarter: 2009Q2

REPORT INFORMATION
  Report Type: 
  Country: None (occurrence: None)
  Receive Date: 20090420
  Receipt Date: 20090416
  Transmission Date: 20091009
  Serious: Yes (Hospitalization)
  Sender: FDA-Public Use
  Company Number: B0565414A

PATIENT
  Sex: Female

DRUGS (3)
  1. RELENZA [Suspect]
     Indication: INFLUENZA
     Dosage: 10MG TWICE PER DAY
     Route: 055
     Dates: start: 20090301, end: 20090302
  2. CLARITH [Suspect]
     Dosage: 200MG TWICE PER DAY
     Route: 048
     Dates: start: 20090301, end: 20090302
  3. CALCIUM SILICATE [Suspect]
     Route: 048
     Dates: start: 20090301, end: 20090302

REACTIONS (2)
  - DRUG ERUPTION [None]
  - LIVER DISORDER [None]
